FAERS Safety Report 6985282-4 (Version None)
Quarter: 2010Q3

REPORT INFORMATION
  Report Type: 
  Country: None (occurrence: None)
  Receive Date: 20100915
  Receipt Date: 20100908
  Transmission Date: 20110219
  Serious: Yes (Hospitalization)
  Sender: FDA-Public Use
  Company Number: GB-ABBOTT-10P-167-0669187-00

PATIENT
  Age: 32 Year
  Sex: Female

DRUGS (3)
  1. HUMIRA [Suspect]
     Indication: PRODUCT USED FOR UNKNOWN INDICATION
     Dates: end: 20100806
  2. HUMIRA [Suspect]
     Dates: start: 20100630
  3. HUMIRA [Suspect]

REACTIONS (3)
  - ABDOMINAL PAIN [None]
  - MALAISE [None]
  - NAUSEA [None]
